FAERS Safety Report 16004482 (Version 1)
Quarter: 2019Q1

REPORT INFORMATION
  Report Type: Spontaneous
  Country: US (occurrence: US)
  Receive Date: 20190225
  Receipt Date: 20190225
  Transmission Date: 20190418
  Serious: Yes (Death)
  Sender: FDA-Public Use
  Company Number: None

PATIENT
  Age: 68 Year
  Sex: Female
  Weight: 72 kg

DRUGS (7)
  1. CALCIUM W/ VITAMIN D [Concomitant]
  2. GLIMEPIRIDE 4MG BID [Concomitant]
  3. METFORMIN 500MG AT LUNCH [Concomitant]
  4. TRULICITY [Suspect]
     Active Substance: DULAGLUTIDE
     Indication: DIABETES MELLITUS
     Dosage: ?          OTHER FREQUENCY:ONCE WEEKLY;?
     Route: 058
  5. METFORMIN 1000 MG BID [Concomitant]
  6. PRAVASTATIN 80MG DAILY [Concomitant]
  7. LISINOPRIL/ HCTZ 20MG/25MG [Concomitant]

REACTIONS (1)
  - Pancreatitis [None]

NARRATIVE: CASE EVENT DATE: 20181210
